FAERS Safety Report 8840988 (Version 1)
Quarter: 2012Q4

REPORT INFORMATION
  Report Type: 
  Country: US (occurrence: US)
  Receive Date: 20121015
  Receipt Date: 20121015
  Transmission Date: 20130627
  Serious: Yes (Other)
  Sender: FDA-Public Use
  Company Number: US-ROCHE-1127363

PATIENT
  Sex: Female
  Weight: 40.5 kg

DRUGS (2)
  1. NUTROPIN AQ [Suspect]
     Indication: TURNER^S SYNDROME
     Dosage: 0.45 cc
     Route: 065
     Dates: start: 199811
  2. PREDNISONE [Concomitant]
     Route: 065

REACTIONS (1)
  - Nephrotic syndrome [Unknown]
